FAERS Safety Report 15575686 (Version 1)
Quarter: 2018Q4

REPORT INFORMATION
  Report Type: Spontaneous
  Country: US (occurrence: US)
  Receive Date: 20181031
  Receipt Date: 20181031
  Transmission Date: 20190205
  Serious: Yes (Other)
  Sender: FDA-Public Use
  Company Number: None

PATIENT
  Age: 49 Year
  Sex: Female
  Weight: 78.75 kg

DRUGS (2)
  1. CPD PROGESTER 300MG [Suspect]
     Active Substance: PROGESTERONE
     Indication: PROGESTERONE DECREASED
     Dosage: ?          QUANTITY:30 CAPSULE(S);?
     Route: 048
     Dates: start: 20180910, end: 20181003
  2. CPD PROGESTER 300MG [Suspect]
     Active Substance: PROGESTERONE
     Indication: HORMONE REPLACEMENT THERAPY
     Dosage: ?          QUANTITY:30 CAPSULE(S);?
     Route: 048
     Dates: start: 20180910, end: 20181003

REACTIONS (7)
  - Intentional dose omission [None]
  - Progesterone increased [None]
  - Gait disturbance [None]
  - Product compounding quality issue [None]
  - Feeling drunk [None]
  - Posture abnormal [None]
  - Dysarthria [None]

NARRATIVE: CASE EVENT DATE: 20180910
